FAERS Safety Report 15567607 (Version 2)
Quarter: 2018Q4

REPORT INFORMATION
  Report Type: Spontaneous
  Country: JP (occurrence: JP)
  Receive Date: 20181030
  Receipt Date: 20181115
  Transmission Date: 20190205
  Serious: Yes (Other)
  Sender: FDA-Public Use
  Company Number: JP-SA-2018SA294510

PATIENT
  Age: 63 Year
  Sex: Male

DRUGS (4)
  1. CISPLATIN. [Suspect]
     Active Substance: CISPLATIN
     Dosage: UNK
     Route: 065
     Dates: start: 201706
  2. CISPLATIN. [Suspect]
     Active Substance: CISPLATIN
     Indication: LARYNGEAL CANCER
     Dosage: UNK
     Route: 065
     Dates: start: 201704
  3. FLUOROURACIL. [Suspect]
     Active Substance: FLUOROURACIL
     Indication: LARYNGEAL CANCER
     Dosage: UNK
     Route: 065
     Dates: start: 201704
  4. DOCETAXEL. [Suspect]
     Active Substance: DOCETAXEL
     Dosage: UNK
     Route: 041
     Dates: start: 201704

REACTIONS (3)
  - Vascular device infection [Unknown]
  - Back pain [Unknown]
  - Infective spondylitis [Unknown]

NARRATIVE: CASE EVENT DATE: 201708
